FAERS Safety Report 9479668 (Version 2)
Quarter: 2013Q3

REPORT INFORMATION
  Report Type: Report from Study
  Country: JP (occurrence: JP)
  Receive Date: 20130827
  Receipt Date: 20130827
  Transmission Date: 20140515
  Serious: Yes (Hospitalization)
  Sender: FDA-Public Use
  Company Number: PHHO2009JP15228

PATIENT
  Age: 81 Year
  Sex: Male
  Weight: 79 kg

DRUGS (19)
  1. ALISKIREN [Suspect]
     Indication: CARDIOVASCULAR DISORDER
     Route: 048
     Dates: start: 20081222, end: 20100929
  2. ALISKIREN [Suspect]
     Dosage: NO TREATMENT
     Dates: start: 20100930, end: 20101024
  3. ALISKIREN [Suspect]
     Route: 048
     Dates: start: 20101025, end: 20111221
  4. MICARDIS [Concomitant]
     Indication: HYPERTENSION
     Dosage: 20 MG, UNK
     Route: 048
     Dates: start: 20060828
  5. NOVOLIN [Concomitant]
     Indication: TYPE 2 DIABETES MELLITUS
     Dosage: 20 IU, UNK
     Route: 058
     Dates: start: 20090421
  6. NOVOLIN [Concomitant]
     Dosage: 22 IU, UNK
     Route: 058
  7. NOVOLIN [Concomitant]
     Dosage: 24 IU, UNK
     Route: 058
  8. BUFFERIN [Concomitant]
     Indication: CAROTID ARTERY STENOSIS
     Dosage: 81 MG, UNK
     Route: 048
     Dates: start: 20020522
  9. NORVASC [Concomitant]
     Indication: HYPERTENSION
     Dosage: 5 MG, UNK
     Route: 048
     Dates: start: 20020522
  10. BEZATOL - SLOW RELEASE [Concomitant]
     Indication: HYPERLIPIDAEMIA
     Dosage: 400 MG, UNK
     Route: 048
     Dates: start: 20021030
  11. INTEBAN [Concomitant]
     Indication: BACK PAIN
     Dosage: UNK
     Dates: start: 20070725
  12. HALCION [Concomitant]
     Indication: INSOMNIA
     Dosage: 0.125 MG, UNK
     Route: 048
     Dates: start: 20090928
  13. FLUITRAN [Concomitant]
     Indication: HYPERTENSION
     Dosage: 1 MG, UNK
     Route: 048
     Dates: start: 20091026
  14. FLUITRAN [Concomitant]
     Dosage: 2 MG, UNK
     Route: 048
  15. HARNAL [Concomitant]
     Indication: BENIGN PROSTATIC HYPERPLASIA
     Dosage: 0.2 MG, UNK
     Route: 048
     Dates: start: 20070424
  16. LIPITOR [Concomitant]
     Indication: HYPERLIPIDAEMIA
     Dosage: 10 MG, UNK
     Route: 048
     Dates: start: 20101025
  17. NOVORAPID [Concomitant]
     Indication: TYPE 2 DIABETES MELLITUS
     Dosage: 26 IU, UNK
     Route: 058
     Dates: start: 20110223
  18. NOVORAPID [Concomitant]
     Dosage: 21 IU, (14-0-7-0)/DAILY
     Route: 058
     Dates: start: 20111026
  19. NOVORAPID [Concomitant]
     Dosage: 12-0-7-0/DAILY
     Route: 058

REACTIONS (7)
  - Occult blood positive [Recovered/Resolved]
  - Diabetes mellitus [Recovering/Resolving]
  - Weight decreased [Recovering/Resolving]
  - Hypertension [Recovering/Resolving]
  - Stress [Unknown]
  - Diabetes mellitus inadequate control [Recovered/Resolved]
  - Bile duct stone [Recovered/Resolved]
